FAERS Safety Report 22312009 (Version 1)
Quarter: 2023Q2

REPORT INFORMATION
  Report Type: Spontaneous
  Country: US (occurrence: US)
  Receive Date: 20230512
  Receipt Date: 20230512
  Transmission Date: 20230722
  Serious: No
  Sender: FDA-Public Use
  Company Number: US-STRIDES ARCOLAB LIMITED-2023SP002328

PATIENT
  Sex: Female

DRUGS (1)
  1. MINOCYCLINE [Suspect]
     Active Substance: MINOCYCLINE HYDROCHLORIDE
     Indication: Acne
     Dosage: 100 MILLIGRAM PER DAY, RECEIVED INTERMITTENTLY FOR 4 YEARS, DECADES AGO
     Route: 065

REACTIONS (3)
  - Thyroid disorder [Unknown]
  - Tracheal disorder [Unknown]
  - Chondropathy [Unknown]
